FAERS Safety Report 24540578 (Version 1)
Quarter: 2024Q4

REPORT INFORMATION
  Report Type: Spontaneous
  Country: ES (occurrence: ES)
  Receive Date: 20241023
  Receipt Date: 20241023
  Transmission Date: 20250115
  Serious: Yes (Other)
  Sender: SANDOZ
  Company Number: None

PATIENT
  Sex: Female
  Weight: 52 kg

DRUGS (1)
  1. ATORVASTATIN [Suspect]
     Active Substance: ATORVASTATIN
     Indication: Prophylaxis
     Dosage: 80 MG, Q24H
     Route: 048
     Dates: start: 20190722, end: 20190809

REACTIONS (5)
  - Jaundice [Recovering/Resolving]
  - Choluria [Recovering/Resolving]
  - Hyperbilirubinaemia [Recovering/Resolving]
  - Hepatic cytolysis [Recovering/Resolving]
  - Myalgia [Recovering/Resolving]

NARRATIVE: CASE EVENT DATE: 20190809
